FAERS Safety Report 7069772-4 (Version None)
Quarter: 2010Q4

REPORT INFORMATION
  Report Type: 
  Country: None (occurrence: None)
  Receive Date: 20101028
  Receipt Date: 20100702
  Transmission Date: 20110411
  Serious: No
  Sender: FDA-Public Use
  Company Number: US-WYE-H15498110

PATIENT
  Age: 17 Year
  Sex: Male
  Weight: 90.8 kg

DRUGS (1)
  1. ADVIL [Suspect]
     Indication: HEADACHE

REACTIONS (2)
  - PRODUCT QUALITY ISSUE [None]
  - VOMITING [None]
